FAERS Safety Report 8377105-6 (Version None)
Quarter: 2012Q2

REPORT INFORMATION
  Report Type: 
  Country: None (occurrence: None)
  Receive Date: 20120522
  Receipt Date: 20120507
  Transmission Date: 20120825
  Serious: Yes (Congenital Anomaly)
  Sender: FDA-Public Use
  Company Number: DE-ARROW GEN-2012-07837

PATIENT
  Sex: Female

DRUGS (4)
  1. DEXAMETHASONE [Concomitant]
     Indication: ADRENOGENITAL SYNDROME
     Dosage: UNK
     Route: 064
  2. LAMOTRIGINE [Suspect]
     Indication: EPILEPSY
     Dosage: 325 MG, DAILY (125-0-200)
     Route: 064
     Dates: start: 20100224, end: 20100712
  3. HYDROCORTISONE [Concomitant]
     Indication: ADRENOGENITAL SYNDROME
     Dosage: 35 MG, DAILY (15-10-10)
     Route: 064
     Dates: start: 20100224, end: 20100712
  4. ASTONIN-H [Concomitant]
     Indication: ADRENOGENITAL SYNDROME
     Dosage: 0.1 MG, DAILY (2X 0.05)
     Route: 064
     Dates: start: 20100224, end: 20100712

REACTIONS (6)
  - TALIPES [None]
  - BRACHYCEPHALY [None]
  - CEREBRAL VENTRICLE DILATATION [None]
  - OESOPHAGEAL ATRESIA [None]
  - CEREBELLAR HYPOPLASIA [None]
  - RETROGNATHIA [None]
